FAERS Safety Report 5572939-5 (Version None)
Quarter: 2007Q4

REPORT INFORMATION
  Report Type: 
  Country: None (occurrence: None)
  Receive Date: 20071219
  Receipt Date: 20071219
  Transmission Date: 20080405
  Serious: No
  Sender: FDA-Public Use
  Company Number: None

PATIENT
  Sex: Male

DRUGS (3)
  1. LIPITOR [Suspect]
     Dosage: DAILY
  2. NIASPAN [Suspect]
     Dosage: DAILY
  3. CRESTOR [Suspect]
     Dosage: DAILY

REACTIONS (1)
  - AMYOTROPHIC LATERAL SCLEROSIS [None]
